FAERS Safety Report 9640828 (Version 1)
Quarter: 2013Q4

REPORT INFORMATION
  Report Type: Spontaneous
  Country: US (occurrence: None)
  Receive Date: 20131021
  Receipt Date: 20131021
  Transmission Date: 20140711
  Serious: Yes (Other)
  Sender: FDA-Public Use
  Company Number: 1260300

PATIENT
  Age: 52 Year
  Sex: Female
  Weight: 58.06 kg

DRUGS (1)
  1. NOSTRILLA [Suspect]
     Indication: NASAL CONGESTION
     Dosage: 1 SPRAY INTO EACH NOSTRIL
     Dates: start: 200310, end: 20131005

REACTIONS (4)
  - Throat irritation [None]
  - Nasal discomfort [None]
  - Lacrimation increased [None]
  - Drug dependence [None]
